FAERS Safety Report 16794849 (Version 2)
Quarter: 2019Q3

REPORT INFORMATION
  Report Type: Spontaneous
  Country: PL (occurrence: PL)
  Receive Date: 20190911
  Receipt Date: 20190912
  Transmission Date: 20191005
  Serious: Yes (Death, Other)
  Sender: FDA-Public Use
  Company Number: PL-BAYER-2019-166197

PATIENT
  Sex: Male

DRUGS (1)
  1. ULTRAVIST [Suspect]
     Active Substance: IOPROMIDE
     Indication: COMPUTERISED TOMOGRAM
     Dosage: UNK UNK, ONCE
     Route: 042
     Dates: start: 20190906, end: 20190906

REACTIONS (5)
  - Anaphylactic reaction [Fatal]
  - Dyspnoea [Fatal]
  - Cardio-respiratory arrest [Fatal]
  - Oedema [Fatal]
  - Death [Fatal]

NARRATIVE: CASE EVENT DATE: 20190906
